FAERS Safety Report 25653545 (Version 1)
Quarter: 2025Q3

REPORT INFORMATION
  Report Type: Spontaneous
  Country: JP (occurrence: JP)
  Receive Date: 20250807
  Receipt Date: 20250807
  Transmission Date: 20251021
  Serious: Yes (Hospitalization, Other)
  Sender: AVYXA HOLDINGS, LLC
  Company Number: JP-AVYXA HOLDINGS, LLC-2025AVY000048

PATIENT
  Age: 53 Year
  Sex: Female

DRUGS (9)
  1. CYCLOPHOSPHAMIDE [Suspect]
     Active Substance: CYCLOPHOSPHAMIDE
     Indication: Dermatomyositis
  2. METHYLPREDNISOLONE [Concomitant]
     Active Substance: METHYLPREDNISOLONE
     Indication: Dermatomyositis
     Route: 065
  3. PREDNISOLONE [Concomitant]
     Active Substance: PREDNISOLONE
     Indication: Dermatomyositis
     Dosage: 45 MILLIGRAM, 1MG/KG
  4. PREDNISOLONE [Concomitant]
     Active Substance: PREDNISOLONE
     Route: 065
  5. PREDNISOLONE [Concomitant]
     Active Substance: PREDNISOLONE
     Route: 065
  6. TACROLIMUS [Concomitant]
     Active Substance: TACROLIMUS
     Indication: Dermatomyositis
     Dosage: 5 MILLIGRAM, QD
     Route: 065
  7. TACROLIMUS [Concomitant]
     Active Substance: TACROLIMUS
     Route: 065
  8. BARICITINIB [Concomitant]
     Active Substance: BARICITINIB
     Indication: Dermatomyositis
     Dosage: 4 MILLIGRAM, QD
     Route: 065
  9. BARICITINIB [Concomitant]
     Active Substance: BARICITINIB
     Route: 065

REACTIONS (2)
  - Lymphoproliferative disorder [Recovered/Resolved]
  - Product use in unapproved indication [Unknown]
